FAERS Safety Report 23978657 (Version 2)
Quarter: 2024Q3

REPORT INFORMATION
  Report Type: Spontaneous
  Country: US (occurrence: None)
  Receive Date: 20240614
  Receipt Date: 20240731
  Transmission Date: 20241016
  Serious: No
  Sender: ASTRAZENECA
  Company Number: 2024A137731

PATIENT
  Age: 62 Year
  Sex: Female

DRUGS (1)
  1. TEZSPIRE [Suspect]
     Active Substance: TEZEPELUMAB-EKKO
     Indication: Asthma
     Dosage: UNKNOWN
     Route: 058
     Dates: start: 20240611

REACTIONS (3)
  - Sinus congestion [Unknown]
  - Swelling face [Unknown]
  - Eye disorder [Unknown]

NARRATIVE: CASE EVENT DATE: 20240612
